FAERS Safety Report 5812767-6 (Version None)
Quarter: 2008Q3

REPORT INFORMATION
  Report Type: 
  Country: None (occurrence: None)
  Receive Date: 20080714
  Receipt Date: 20080714
  Transmission Date: 20090109
  Serious: Yes (Hospitalization)
  Sender: FDA-Public Use
  Company Number: None

PATIENT
  Sex: Male
  Weight: 27.7 kg

DRUGS (7)
  1. CYCLOPHOSPHAMIDE [Suspect]
     Dosage: 1500 MG
  2. DOXORUBICIN HCL [Suspect]
     Dosage: 60 MG
  3. LEUCOVORIN CALCIUM [Suspect]
     Dosage: 180 MG
  4. METHOTREXATE [Suspect]
     Dosage: 8000 MG
  5. PREDNISONE TAB [Suspect]
     Dosage: 370 MG
  6. RITUXIMAB (MOAB C2B8 ANTI CD20, CHIMERIC) [Suspect]
     Dosage: 750 MG
  7. VINCRISTINE SULFATE [Suspect]
     Dosage: 2 MG

REACTIONS (7)
  - BLOOD CULTURE POSITIVE [None]
  - CANDIDIASIS [None]
  - CENTRAL LINE INFECTION [None]
  - DRUG TOXICITY [None]
  - HYPOPHAGIA [None]
  - MUCOSAL INFLAMMATION [None]
  - ODYNOPHAGIA [None]
